FAERS Safety Report 21182625 (Version 1)
Quarter: 2022Q3

REPORT INFORMATION
  Report Type: Spontaneous
  Country: US (occurrence: US)
  Receive Date: 20220808
  Receipt Date: 20220808
  Transmission Date: 20221026
  Serious: No
  Sender: FDA-Public Use
  Company Number: US-SA-SAC20220801000564

PATIENT
  Sex: Female

DRUGS (1)
  1. THYROGEN [Suspect]
     Active Substance: THYROTROPIN ALFA
     Indication: Autoimmune thyroiditis
     Dosage: 0.9 MG, QD, FOR 2 DAYS
     Route: 030
     Dates: start: 20210814, end: 20210815

REACTIONS (1)
  - Gastrooesophageal reflux disease [Unknown]
